FAERS Safety Report 24407448 (Version 1)
Quarter: 2024Q4

REPORT INFORMATION
  Report Type: Report from Study
  Country: US (occurrence: US)
  Receive Date: 20241007
  Receipt Date: 20241007
  Transmission Date: 20250115
  Serious: Yes (Hospitalization, Other)
  Sender: ABBVIE
  Company Number: US-ABBVIE-5951347

PATIENT
  Sex: Female

DRUGS (1)
  1. HUMIRA [Suspect]
     Active Substance: ADALIMUMAB
     Indication: Rheumatoid arthritis
     Route: 058
     Dates: start: 20230306

REACTIONS (5)
  - Loss of consciousness [Unknown]
  - Otitis media chronic [Not Recovered/Not Resolved]
  - Hypopnoea [Unknown]
  - Mastoiditis [Unknown]
  - Limb discomfort [Not Recovered/Not Resolved]
